FAERS Safety Report 21879328 (Version 1)
Quarter: 2023Q1

REPORT INFORMATION
  Report Type: Spontaneous
  Country: US (occurrence: None)
  Receive Date: 20230117
  Receipt Date: 20230117
  Transmission Date: 20230417
  Serious: Yes (Life-Threatening, Hospitalization)
  Sender: FDA-Public Use
  Company Number: None

PATIENT
  Age: 68 Year
  Sex: Male
  Weight: 72 kg

DRUGS (6)
  1. LAMOTRIGINE [Suspect]
     Active Substance: LAMOTRIGINE
     Indication: Seizure
     Dosage: OTHER FREQUENCY : TID 75/50/75;?
     Route: 048
     Dates: start: 20220927, end: 20221015
  2. Valproic Acid 500 mg BID [Concomitant]
  3. Oxcarbazepine 900 mg BID [Concomitant]
  4. Aspirin 81 mg DR QD [Concomitant]
  5. Ibuprofen 200 mg Q6 PRN [Concomitant]
  6. Naproxen 375 mg PRN [Concomitant]

REACTIONS (10)
  - Fatigue [None]
  - Concussion [None]
  - Eye irritation [None]
  - Malaise [None]
  - Hypophagia [None]
  - Staphylococcal bacteraemia [None]
  - Tremor [None]
  - Stevens-Johnson syndrome [None]
  - Toxic epidermal necrolysis [None]
  - Oral disorder [None]

NARRATIVE: CASE EVENT DATE: 20221015
